FAERS Safety Report 24118026 (Version 1)
Quarter: 2024Q3

REPORT INFORMATION
  Report Type: Spontaneous
  Country: GB (occurrence: GB)
  Receive Date: 20240722
  Receipt Date: 20240722
  Transmission Date: 20241017
  Serious: Yes (Other)
  Sender: TEVA
  Company Number: GB-MHRA-EMIS-3266-83247c17-f55e-419e-9135-9caa97927323

PATIENT
  Age: 62 Year
  Sex: Male
  Weight: 112 kg

DRUGS (2)
  1. AMLODIPINE [Suspect]
     Active Substance: AMLODIPINE BESYLATE
     Indication: Essential hypertension
     Dosage: ONE TO BE TAKEN EACH MORNING FOR HIGH BLOOD PRESSURE, DURATION: 38 DAYS
     Route: 065
     Dates: start: 20240602, end: 20240710
  2. MOXONIDINE [Concomitant]
     Active Substance: MOXONIDINE
     Indication: Essential hypertension
     Dosage: ONE TO BE TAKEN TWICE A DAY
     Dates: start: 20240422

REACTIONS (1)
  - Joint swelling [Unknown]
